FAERS Safety Report 6604158-5 (Version None)
Quarter: 2010Q1

REPORT INFORMATION
  Report Type: 
  Country: None (occurrence: None)
  Receive Date: 20100226
  Receipt Date: 20090612
  Transmission Date: 20100710
  Serious: No
  Sender: FDA-Public Use
  Company Number: A0791222A

PATIENT
  Sex: Female

DRUGS (4)
  1. LAMICTAL CD [Suspect]
     Indication: BIPOLAR DISORDER
     Dosage: 150MG PER DAY
     Route: 048
  2. HYALURONIC ACID [Suspect]
  3. BENZOYL PEROXIDE GEL [Concomitant]
  4. WELLBUTRIN [Concomitant]

REACTIONS (3)
  - DRY SKIN [None]
  - RASH MACULAR [None]
  - SWELLING [None]
